FAERS Safety Report 4744801-9 (Version None)
Quarter: 2005Q3

REPORT INFORMATION
  Report Type: 
  Country: None (occurrence: None)
  Receive Date: 20050811
  Receipt Date: 20050801
  Transmission Date: 20060218
  Serious: Yes (Hospitalization)
  Sender: FDA-Public Use
  Company Number: 216584

PATIENT
  Age: 38 Year
  Sex: Male
  Weight: 67.1 kg

DRUGS (7)
  1. AVASTIN [Suspect]
     Indication: PANCREATIC CARCINOMA
     Dosage: 10 MG/KG
     Route: 042
     Dates: start: 20050616, end: 20050713
  2. DOCETAXEL (DOCETAXEL) [Suspect]
     Indication: PANCREATIC CARCINOMA
     Dosage: 35 MG/M2
     Route: 042
     Dates: start: 20050616, end: 20050720
  3. PANCREASE (PANCRELIPASE) [Concomitant]
  4. PROTONIX [Concomitant]
  5. CORAL CALCIUM (MAGNESIUM NOS, CHOLECALCIFEROL, CALCIUM NOS) [Concomitant]
  6. OXYCODONE HCL [Concomitant]
  7. OXYCONTIN [Concomitant]

REACTIONS (3)
  - BLOOD ALKALINE PHOSPHATASE INCREASED [None]
  - GASTROINTESTINAL PERFORATION [None]
  - PLATELET COUNT INCREASED [None]
